FAERS Safety Report 4469214-9 (Version None)
Quarter: 2004Q4

REPORT INFORMATION
  Report Type: 
  Country: None (occurrence: None)
  Receive Date: 20041008
  Receipt Date: 20040928
  Transmission Date: 20050328
  Serious: Yes (Death, Hospitalization)
  Sender: FDA-Public Use
  Company Number: US-BRISTOL-MYERS SQUIBB COMPANY-12715520

PATIENT
  Age: 63 Year
  Sex: Male

DRUGS (3)
  1. DIDANOSINE EC [Suspect]
     Indication: HIV INFECTION
  2. TENOFOVIR DF [Suspect]
     Indication: HIV INFECTION
  3. LOPINAVIR + RITONAVIR [Suspect]
     Indication: HIV INFECTION
     Dosage: 400 MG LOPINAVIR / 100 MG RITONAVIR

REACTIONS (3)
  - LACTIC ACIDOSIS [None]
  - PANCREATITIS [None]
  - UPPER GASTROINTESTINAL HAEMORRHAGE [None]
